FAERS Safety Report 13196379 (Version 1)
Quarter: 2017Q1

REPORT INFORMATION
  Report Type: Spontaneous
  Country: US (occurrence: US)
  Receive Date: 20170208
  Receipt Date: 20170208
  Transmission Date: 20170428
  Serious: No
  Sender: FDA-Public Use
  Company Number: US-SHIRE-US201700773

PATIENT
  Age: 29 Year
  Sex: Female
  Weight: 45.35 kg

DRUGS (15)
  1. STRATTERA [Concomitant]
     Active Substance: ATOMOXETINE HYDROCHLORIDE
     Indication: ATTENTION DEFICIT/HYPERACTIVITY DISORDER
     Dosage: 40 MG, UNKNOWN (A DAY FOR 3 DAYS)
     Route: 048
     Dates: start: 20161214, end: 20161217
  2. STRATTERA [Concomitant]
     Active Substance: ATOMOXETINE HYDROCHLORIDE
     Dosage: 80 MG, 1X/DAY:QD (QAM)
     Route: 048
     Dates: start: 20161217
  3. PAXIL [Concomitant]
     Active Substance: PAROXETINE HYDROCHLORIDE
     Indication: ANXIETY
     Dosage: 20 MG, 1X/DAY:QD (IN THE MORNING)
     Route: 048
     Dates: start: 20161214, end: 20161220
  4. INTUNIV [Suspect]
     Active Substance: GUANFACINE HYDROCHLORIDE
     Indication: ATTENTION DEFICIT/HYPERACTIVITY DISORDER
     Dosage: 1 MG, UNKNOWN (A DAY AND INCREASED TAPERING WEEKLY)
     Route: 048
     Dates: start: 20161222, end: 20161227
  5. PAXIL [Concomitant]
     Active Substance: PAROXETINE HYDROCHLORIDE
     Indication: DEPRESSION
     Dosage: 30 MG, 1X/DAY:QD (QAM)
     Route: 048
     Dates: start: 20161221
  6. LOPRESSOR [Concomitant]
     Active Substance: METOPROLOL TARTRATE
     Indication: ANXIETY
     Dosage: 25 MG, 2X/DAY:BID
     Route: 048
     Dates: start: 20161221
  7. ATARAX [Concomitant]
     Active Substance: HYDROXYZINE HYDROCHLORIDE
     Indication: ANXIETY
     Dosage: 50 MG, 2X/DAY:BID
     Route: 048
     Dates: start: 20161206
  8. MELATONIN [Concomitant]
     Active Substance: MELATONIN
     Indication: INSOMNIA
     Dosage: 10 MG, 1X/DAY:QD (QHS)
     Route: 048
     Dates: start: 20161206
  9. LOPRESSOR [Concomitant]
     Active Substance: METOPROLOL TARTRATE
     Indication: PANIC ATTACK
  10. LOPRESSOR [Concomitant]
     Active Substance: METOPROLOL TARTRATE
     Indication: PALPITATIONS
  11. PRAZOSIN [Concomitant]
     Active Substance: PRAZOSIN
     Indication: NIGHTMARE
  12. INTUNIV [Suspect]
     Active Substance: GUANFACINE HYDROCHLORIDE
     Dosage: 3 MG, UNKNOWN (A DAY)
     Route: 048
     Dates: end: 20161227
  13. BENZOYL PEROXIDE. [Concomitant]
     Active Substance: BENZOYL PEROXIDE
     Indication: ACNE CYSTIC
     Dosage: 10 %, 2X/DAY:BID
     Route: 061
     Dates: start: 20161206
  14. VITAMIN D3 [Concomitant]
     Active Substance: CHOLECALCIFEROL
     Indication: VITAMIN D DEFICIENCY
     Dosage: 1000 IU, 1X/DAY:QD
     Route: 048
     Dates: start: 20161214
  15. PRAZOSIN [Concomitant]
     Active Substance: PRAZOSIN
     Indication: POST-TRAUMATIC STRESS DISORDER
     Dosage: 1 MG, 1X/DAY:QD (QHS)
     Route: 048
     Dates: start: 20161206

REACTIONS (2)
  - Drug administered to patient of inappropriate age [Recovered/Resolved]
  - No adverse event [Recovered/Resolved]

NARRATIVE: CASE EVENT DATE: 20161222
